FAERS Safety Report 11995549 (Version 1)
Quarter: 2016Q1

REPORT INFORMATION
  Report Type: Spontaneous
  Country: US (occurrence: US)
  Receive Date: 20160203
  Receipt Date: 20160203
  Transmission Date: 20160526
  Serious: Yes (Death, Hospitalization, Other)
  Sender: FDA-Public Use
  Company Number: US-JNJFOC-20160116671

PATIENT

DRUGS (2)
  1. ACETAMINOPHEN. [Suspect]
     Active Substance: ACETAMINOPHEN
     Route: 065
  2. ACETAMINOPHEN. [Suspect]
     Active Substance: ACETAMINOPHEN
     Indication: PRODUCT USED FOR UNKNOWN INDICATION
     Route: 065

REACTIONS (14)
  - Septic shock [Fatal]
  - Haemorrhage intracranial [Fatal]
  - Acute respiratory failure [Fatal]
  - Brain oedema [Fatal]
  - Toxicity to various agents [Fatal]
  - Hypoglycaemia [Fatal]
  - Hypophosphataemia [Fatal]
  - Acute kidney injury [Fatal]
  - Hepatic encephalopathy [Fatal]
  - Pancreatitis [Fatal]
  - Cardiovascular disorder [Fatal]
  - Sepsis [Fatal]
  - Disseminated intravascular coagulation [Fatal]
  - Upper gastrointestinal haemorrhage [Fatal]
